FAERS Safety Report 6771212-7 (Version None)
Quarter: 2010Q2

REPORT INFORMATION
  Report Type: 
  Country: None (occurrence: None)
  Receive Date: 20100616
  Receipt Date: 20100607
  Transmission Date: 20101027
  Serious: Yes (Other)
  Sender: FDA-Public Use
  Company Number: JP-BAYER-201011719BYL

PATIENT
  Age: 52 Year
  Sex: Female

DRUGS (3)
  1. FLUDARA [Suspect]
     Indication: FOLLICLE CENTRE LYMPHOMA, FOLLICULAR GRADE I, II, III
     Route: 065
  2. HEPARIN AND PREPARATIONS [Concomitant]
     Route: 041
  3. CYCLOPHOSPHAMIDE [Concomitant]
     Indication: FOLLICLE CENTRE LYMPHOMA, FOLLICULAR GRADE I, II, III
     Route: 065

REACTIONS (1)
  - PULMONARY EMBOLISM [None]
